FAERS Safety Report 10639880 (Version 2)
Quarter: 2014Q4

REPORT INFORMATION
  Report Type: Report from Study
  Country: CA (occurrence: CA)
  Receive Date: 20141209
  Receipt Date: 20141211
  Transmission Date: 20150529
  Serious: Yes (Death)
  Sender: FDA-Public Use
  Company Number: PHHY2014CA160588

PATIENT
  Sex: Female

DRUGS (5)
  1. ACLASTA [Suspect]
     Active Substance: ZOLEDRONIC ACID
     Dosage: UNK, ONCE PER YEAR
     Route: 042
     Dates: start: 20110325
  2. ACLASTA [Suspect]
     Active Substance: ZOLEDRONIC ACID
     Dosage: UNK, ONCE PER YEAR
     Route: 042
     Dates: start: 20130307
  3. ACLASTA [Suspect]
     Active Substance: ZOLEDRONIC ACID
     Dosage: UNK, ONCE PER YEAR
     Route: 042
     Dates: start: 20120306
  4. ACLASTA [Suspect]
     Active Substance: ZOLEDRONIC ACID
     Indication: OSTEOPOROSIS
     Dosage: UNK, ONCE PER YEAR
     Route: 042
     Dates: start: 20100324
  5. ACLASTA [Suspect]
     Active Substance: ZOLEDRONIC ACID
     Dosage: UNK, ONCE PER YEAR
     Route: 042
     Dates: start: 20140304

REACTIONS (1)
  - Colon cancer [Fatal]
